FAERS Safety Report 6544072-7 (Version None)
Quarter: 2010Q1

REPORT INFORMATION
  Report Type: 
  Country: None (occurrence: None)
  Receive Date: 20100119
  Receipt Date: 20100119
  Transmission Date: 20100710
  Serious: No
  Sender: FDA-Public Use
  Company Number: None

PATIENT
  Age: 29 Year
  Sex: Female
  Weight: 56.6996 kg

DRUGS (1)
  1. MIRENA [Suspect]
     Indication: INTRA-UTERINE CONTRACEPTIVE DEVICE
     Dates: start: 20080120, end: 20100115

REACTIONS (5)
  - ACNE [None]
  - HEADACHE [None]
  - LOSS OF LIBIDO [None]
  - MOOD SWINGS [None]
  - QUALITY OF LIFE DECREASED [None]
